FAERS Safety Report 14011051 (Version 1)
Quarter: 2017Q3

REPORT INFORMATION
  Report Type: Spontaneous
  Country: US (occurrence: US)
  Receive Date: 20170925
  Receipt Date: 20170925
  Transmission Date: 20171128
  Serious: Yes (Other)
  Sender: FDA-Public Use
  Company Number: None

PATIENT
  Age: 70 Year
  Sex: Female

DRUGS (14)
  1. IMITREX [Concomitant]
     Active Substance: SUMATRIPTAN SUCCINATE
  2. VITAMIN C [Concomitant]
     Active Substance: ASCORBIC ACID
  3. CLONAZEPAM. [Concomitant]
     Active Substance: CLONAZEPAM
  4. POTASSIUM GLUCONATE [Concomitant]
     Active Substance: POTASSIUM GLUCONATE
  5. CIPROFLOXACIN. [Concomitant]
     Active Substance: CIPROFLOXACIN
  6. ZOMETA [Concomitant]
     Active Substance: ZOLEDRONIC ACID
  7. FISH OIL EXTRA STRENGTH [Concomitant]
  8. VITAMIN D [Concomitant]
     Active Substance: CHOLECALCIFEROL
  9. IBRANCE [Suspect]
     Active Substance: PALBOCICLIB
     Indication: BREAST CANCER
     Route: 048
     Dates: start: 20160513
  10. FASLODEX [Concomitant]
     Active Substance: FULVESTRANT
  11. CALCIUM CITRATE [Concomitant]
     Active Substance: CALCIUM CITRATE
  12. MAGNESIUM OXIDE. [Concomitant]
     Active Substance: MAGNESIUM OXIDE
  13. ASPIRIN. [Concomitant]
     Active Substance: ASPIRIN
  14. CEPHALEXIN. [Concomitant]
     Active Substance: CEPHALEXIN

REACTIONS (3)
  - Urinary tract infection [None]
  - White blood cell disorder [None]
  - Fatigue [None]
